FAERS Safety Report 22358273 (Version 1)
Quarter: 2023Q2

REPORT INFORMATION
  Report Type: Spontaneous
  Country: US (occurrence: US)
  Receive Date: 20230524
  Receipt Date: 20230524
  Transmission Date: 20230722
  Serious: No
  Sender: FDA-Public Use
  Company Number: US-AUROBINDO-AUR-APL-2022-041607

PATIENT
  Sex: Female

DRUGS (1)
  1. OLOPATADINE HYDROCHLORIDE [Suspect]
     Active Substance: OLOPATADINE HYDROCHLORIDE
     Indication: Product used for unknown indication
     Dosage: 1 DOSAGE FORM, EVERY MORNING (PUT 01 DROP IN BOTH EYES EVERY MORNING FOR 60 DAYS)
     Route: 065

REACTIONS (3)
  - Eye allergy [Unknown]
  - Pruritus [Unknown]
  - Drug ineffective [Unknown]
